FAERS Safety Report 9476227 (Version 1)
Quarter: 2013Q3

REPORT INFORMATION
  Report Type: Spontaneous
  Country: US (occurrence: None)
  Receive Date: 20130823
  Receipt Date: 20130823
  Transmission Date: 20140515
  Serious: Yes (Hospitalization)
  Sender: FDA-Public Use
  Company Number: None

PATIENT
  Age: 44 Year
  Sex: Male
  Weight: 115.4 kg

DRUGS (3)
  1. LITHIUM [Suspect]
     Indication: BIPOLAR DISORDER
     Dosage: 450 MG BID PO
     Route: 048
     Dates: start: 20120808, end: 20120824
  2. LITHIUM [Suspect]
     Indication: MANIA
     Dosage: 450 MG BID PO
     Route: 048
     Dates: start: 20120808, end: 20120824
  3. LITHIUM [Suspect]
     Indication: AFFECTIVE DISORDER
     Dosage: 450 MG BID PO
     Route: 048
     Dates: start: 20120808, end: 20120824

REACTIONS (2)
  - Renal failure acute [None]
  - Antipsychotic drug level increased [None]
